FAERS Safety Report 15220736 (Version 1)
Quarter: 2018Q3

REPORT INFORMATION
  Report Type: Spontaneous
  Country: US (occurrence: US)
  Receive Date: 20180731
  Receipt Date: 20180731
  Transmission Date: 20181010
  Serious: No
  Sender: FDA-Public Use
  Company Number: US-UNITED THERAPEUTICS-UNT-2018-011473

PATIENT
  Age: 28 Year
  Sex: Female
  Weight: 70.3 kg

DRUGS (1)
  1. REMODULIN [Suspect]
     Active Substance: TREPROSTINIL
     Indication: PULMONARY ARTERIAL HYPERTENSION
     Dosage: 0.095 ?G/KG, CONTINUING
     Route: 058
     Dates: start: 20150306

REACTIONS (8)
  - Dyspnoea [Unknown]
  - Pain in extremity [Unknown]
  - Asthenia [Unknown]
  - Neck pain [Unknown]
  - Dyspnoea exertional [Unknown]
  - Fatigue [Unknown]
  - Headache [Unknown]
  - Device malfunction [Unknown]

NARRATIVE: CASE EVENT DATE: 20180721
